FAERS Safety Report 8247477-1 (Version None)
Quarter: 2012Q1

REPORT INFORMATION
  Report Type: 
  Country: None (occurrence: None)
  Receive Date: 20120330
  Receipt Date: 20120328
  Transmission Date: 20120608
  Serious: No
  Sender: FDA-Public Use
  Company Number: US-TEVA-330097USA

PATIENT
  Sex: Female
  Weight: 49.486 kg

DRUGS (3)
  1. MONTELUKAST [Concomitant]
     Indication: ASTHMA EXERCISE INDUCED
     Route: 048
     Dates: start: 20120324
  2. BECLOMETHASONE DIPROPIONATE [Concomitant]
     Indication: ASTHMA EXERCISE INDUCED
     Dosage: 2 PUFFS BID
     Dates: start: 20120324
  3. PROAIR HFA [Suspect]
     Indication: ASTHMA EXERCISE INDUCED
     Dosage: 180 MICROGRAM; 2 PUFFS PRN
     Route: 055
     Dates: start: 20120312

REACTIONS (2)
  - OVERDOSE [None]
  - DRUG INEFFECTIVE [None]
